FAERS Safety Report 20988867 (Version 1)
Quarter: 2022Q2

REPORT INFORMATION
  Report Type: Report from Study
  Country: US (occurrence: US)
  Receive Date: 20220621
  Receipt Date: 20220621
  Transmission Date: 20220721
  Serious: Yes (Other)
  Sender: FDA-Public Use
  Company Number: US-CELGENE-USA-20211208879

PATIENT
  Age: 59 Year
  Sex: Female
  Weight: 62.6 kg

DRUGS (3)
  1. REVLIMID [Suspect]
     Active Substance: LENALIDOMIDE
     Indication: Plasma cell myeloma
     Dosage: 25 MILLIGRAM
     Route: 048
     Dates: start: 20200127
  2. REVLIMID [Suspect]
     Active Substance: LENALIDOMIDE
     Route: 048
  3. ASPIRIN [Suspect]
     Active Substance: ASPIRIN
     Indication: Product used for unknown indication
     Route: 065

REACTIONS (6)
  - Neuropathy peripheral [Unknown]
  - Anxiety [Unknown]
  - Hepatic enzyme increased [Unknown]
  - Dry eye [Unknown]
  - Dyspepsia [Unknown]
  - Product dose omission issue [Unknown]
